FAERS Safety Report 19299191 (Version 1)
Quarter: 2021Q2

REPORT INFORMATION
  Report Type: Spontaneous
  Country: CA (occurrence: CA)
  Receive Date: 20210525
  Receipt Date: 20210525
  Transmission Date: 20210717
  Serious: Yes (Other)
  Sender: FDA-Public Use
  Company Number: CA-TEVA-2021-CA-1913651

PATIENT
  Age: 42 Year
  Sex: Male

DRUGS (16)
  1. PALIPERIDONE. [Suspect]
     Active Substance: PALIPERIDONE
     Route: 042
  2. QUETIAPINE FUMARATE. [Suspect]
     Active Substance: QUETIAPINE FUMARATE
     Route: 048
  3. FLUVOXAMINE [Suspect]
     Active Substance: FLUVOXAMINE
     Indication: SCHIZOPHRENIA
     Route: 065
  4. ABILIFY [Suspect]
     Active Substance: ARIPIPRAZOLE
     Indication: PRODUCT USED FOR UNKNOWN INDICATION
     Route: 048
  5. CLOZAPINE. [Suspect]
     Active Substance: CLOZAPINE
     Indication: PRODUCT USED FOR UNKNOWN INDICATION
     Route: 065
  6. CLOZARIL [Suspect]
     Active Substance: CLOZAPINE
     Indication: SCHIZOPHRENIA
     Route: 065
  7. PALIPERIDONE. [Suspect]
     Active Substance: PALIPERIDONE
     Indication: PRODUCT USED FOR UNKNOWN INDICATION
     Route: 065
  8. PALIPERIDONE. [Suspect]
     Active Substance: PALIPERIDONE
     Route: 065
  9. QUETIAPINE FUMARATE. [Suspect]
     Active Substance: QUETIAPINE FUMARATE
     Indication: SCHIZOPHRENIA
     Route: 048
  10. PALIPERIDONE. [Suspect]
     Active Substance: PALIPERIDONE
     Indication: SCHIZOPHRENIA
     Route: 042
  11. PALIPERIDONE. [Suspect]
     Active Substance: PALIPERIDONE
     Route: 065
  12. PALIPERIDONE. [Suspect]
     Active Substance: PALIPERIDONE
     Route: 030
  13. LUVOX [Suspect]
     Active Substance: FLUVOXAMINE MALEATE
     Indication: SCHIZOPHRENIA
     Route: 065
  14. PALIPERIDONE. [Suspect]
     Active Substance: PALIPERIDONE
     Route: 065
  15. REXULTI [Suspect]
     Active Substance: BREXPIPRAZOLE
     Indication: SCHIZOPHRENIA
     Route: 065
  16. PALIPERIDONE. [Suspect]
     Active Substance: PALIPERIDONE
     Route: 030

REACTIONS (4)
  - Psychotic disorder [Recovered/Resolved]
  - Loss of libido [Recovered/Resolved]
  - Apathy [Recovered/Resolved]
  - Weight increased [Recovered/Resolved]
